FAERS Safety Report 13219025 (Version 1)
Quarter: 2017Q1

REPORT INFORMATION
  Report Type: Other
  Country: US (occurrence: US)
  Receive Date: 20170210
  Receipt Date: 20170210
  Transmission Date: 20170428
  Serious: No
  Sender: FDA-Public Use
  Company Number: US-ACORDA-ACO_127708_2016

PATIENT
  Age: 47 Year
  Sex: Female
  Weight: 68.48 kg

DRUGS (4)
  1. AMPYRA [Suspect]
     Active Substance: DALFAMPRIDINE
     Indication: PRODUCT USED FOR UNKNOWN INDICATION
     Dosage: 10 MG, BID
     Route: 048
     Dates: start: 20151012, end: 20161005
  2. VITAMIN D3 [Concomitant]
     Active Substance: CHOLECALCIFEROL
     Indication: PRODUCT USED FOR UNKNOWN INDICATION
     Dosage: 1 DF, QD
     Route: 048
  3. REBIF [Suspect]
     Active Substance: INTERFERON BETA-1A
     Indication: PRODUCT USED FOR UNKNOWN INDICATION
     Dosage: 0.5 ML, 3X/WK
     Route: 058
  4. OMEGA 3 350MG- 400MG [Concomitant]
     Indication: PRODUCT USED FOR UNKNOWN INDICATION
     Dosage: 1 DF, QD
     Route: 048

REACTIONS (22)
  - Pain [Unknown]
  - Cerebellar syndrome [Unknown]
  - Anaemia [Unknown]
  - Dyskinesia [Unknown]
  - Condition aggravated [Unknown]
  - Fall [Unknown]
  - Hypoaesthesia [Unknown]
  - Pyrexia [Recovered/Resolved]
  - Urinary tract infection [Unknown]
  - Asthenia [Unknown]
  - Inappropriate schedule of drug administration [Unknown]
  - Hyporeflexia [Unknown]
  - Abasia [Unknown]
  - Atrophy [Unknown]
  - Movement disorder [Unknown]
  - Walking aid user [Unknown]
  - Confusional state [Unknown]
  - Gait disturbance [Unknown]
  - Ataxia [Unknown]
  - Central nervous system lesion [Unknown]
  - Extensor plantar response [Unknown]
  - Dry mouth [Unknown]

NARRATIVE: CASE EVENT DATE: 20160512
